FAERS Safety Report 24994902 (Version 1)
Quarter: 2025Q1

REPORT INFORMATION
  Report Type: Spontaneous
  Country: US (occurrence: US)
  Receive Date: 20250221
  Receipt Date: 20250221
  Transmission Date: 20250409
  Serious: Yes (Hospitalization, Other)
  Sender: ABBVIE
  Company Number: US-ABBVIE-6142953

PATIENT
  Age: 24 Year
  Sex: Female

DRUGS (1)
  1. SYNTHROID [Suspect]
     Active Substance: LEVOTHYROXINE SODIUM
     Indication: Hypothyroidism
     Route: 048

REACTIONS (7)
  - Colectomy total [Unknown]
  - Therapeutic product effect incomplete [Unknown]
  - Decompensated hypothyroidism [Unknown]
  - Injection site pain [Unknown]
  - Malabsorption [Unknown]
  - Stoma creation [Unknown]
  - Thyroid cancer [Unknown]
